FAERS Safety Report 8287278-1 (Version None)
Quarter: 2012Q2

REPORT INFORMATION
  Report Type: 
  Country: None (occurrence: None)
  Receive Date: 20120416
  Receipt Date: 20120416
  Transmission Date: 20120825
  Serious: Yes (Other)
  Sender: FDA-Public Use
  Company Number: None

PATIENT
  Sex: Female
  Weight: 74.389 kg

DRUGS (2)
  1. ESCITALOPRAM [Suspect]
     Indication: ANXIETY DISORDER
     Dosage: 10 MG 2 1/2 WEEKS
     Route: 048
     Dates: start: 20120320, end: 20120408
  2. ESCITALOPRAM [Suspect]
     Indication: DEPRESSION
     Dosage: 10 MG 2 1/2 WEEKS
     Route: 048
     Dates: start: 20120320, end: 20120408

REACTIONS (6)
  - DRUG INEFFECTIVE [None]
  - FEELING ABNORMAL [None]
  - DEPRESSION [None]
  - EMOTIONAL DISORDER [None]
  - ANXIETY [None]
  - PRODUCT SUBSTITUTION ISSUE [None]
